FAERS Safety Report 8823584 (Version 1)
Quarter: 2012Q4

REPORT INFORMATION
  Report Type: 
  Country: FR (occurrence: FR)
  Receive Date: 20121003
  Receipt Date: 20121003
  Transmission Date: 20130627
  Serious: Yes (Other)
  Sender: FDA-Public Use
  Company Number: FR-MYLANLABS-2012S1019629

PATIENT
  Age: 44 Year
  Sex: Male

DRUGS (4)
  1. PREDNISOLONE [Suspect]
     Indication: TOOTH EXTRACTION
  2. IBUPROFEN [Suspect]
     Indication: TOOTH EXTRACTION
  3. ACETAMINOPHEN [Suspect]
     Indication: TOOTH EXTRACTION
  4. YELLOW FEVER VACCINE NOS [Suspect]
     Indication: IMMUNISATION

REACTIONS (2)
  - Hallucination [Unknown]
  - Phobia [Unknown]
